FAERS Safety Report 5225991-0 (Version None)
Quarter: 2007Q1

REPORT INFORMATION
  Report Type: 
  Country: None (occurrence: None)
  Receive Date: 20070129
  Receipt Date: 20070122
  Transmission Date: 20070707
  Serious: Yes (Hospitalization)
  Sender: FDA-Public Use
  Company Number: 2007SP001309

PATIENT
  Age: 74 Year
  Sex: Female
  Weight: 61.3 kg

DRUGS (2)
  1. TEMOZOLOMIDE (S-P) (125 MG) [Suspect]
     Indication: GLIOBLASTOMA MULTIFORME
     Dosage: 125 MG; QD; PO
     Route: 048
     Dates: start: 20070104, end: 20070122
  2. RADIATION [Concomitant]

REACTIONS (3)
  - HYPERGLYCAEMIA [None]
  - HYPOALBUMINAEMIA [None]
  - MUSCULAR WEAKNESS [None]
